FAERS Safety Report 13179905 (Version 2)
Quarter: 2017Q1

REPORT INFORMATION
  Report Type: Spontaneous
  Country: FR (occurrence: FR)
  Receive Date: 20170202
  Receipt Date: 20170210
  Transmission Date: 20170428
  Serious: Yes (Hospitalization)
  Sender: FDA-Public Use
  Company Number: FR-009507513-1701FRA012992

PATIENT
  Age: 23 Year
  Sex: Female

DRUGS (1)
  1. NEXPLANON [Suspect]
     Active Substance: ETONOGESTREL
     Indication: CONTRACEPTION
     Dosage: 3 DF (3DF IN ONE INSERTION)
     Route: 058
     Dates: start: 20160212, end: 20160222

REACTIONS (4)
  - Application site oedema [Recovered/Resolved]
  - Drug administration error [Recovered/Resolved]
  - Pain in extremity [Recovered/Resolved]
  - Overdose [Recovered/Resolved]
